FAERS Safety Report 8563585 (Version 3)
Quarter: 2013Q3

REPORT INFORMATION
  Report Type: Spontaneous
  Country: US (occurrence: US)
  Receive Date: 20120515
  Receipt Date: 20130807
  Transmission Date: 20140515
  Serious: Yes (Other)
  Sender: FDA-Public Use
  Company Number: US-JNJFOC-20120506760

PATIENT
  Age: 64 Year
  Sex: Female
  Weight: 89.36 kg

DRUGS (35)
  1. REMICADE [Suspect]
     Indication: RHEUMATOID ARTHRITIS
     Route: 042
  2. REMICADE [Suspect]
     Indication: RHEUMATOID ARTHRITIS
     Route: 042
     Dates: end: 2011
  3. REMICADE [Suspect]
     Indication: RHEUMATOID ARTHRITIS
     Route: 042
     Dates: start: 20120504
  4. REMICADE [Suspect]
     Indication: RHEUMATOID ARTHRITIS
     Route: 042
     Dates: start: 201010
  5. CYMBALTA [Suspect]
     Indication: PAIN
     Route: 048
  6. CIMZIA [Suspect]
     Indication: RHEUMATOID ARTHRITIS
     Dosage: E/O/W
     Route: 065
  7. ALL OTHER THERAPEUTIC PRODUCT [Concomitant]
     Dosage: OVER 50
     Route: 065
  8. FISH OIL [Concomitant]
     Indication: CARDIAC DISORDER
     Dosage: 1000MG/300 OMEGA 3,
     Route: 065
  9. FISH OIL [Concomitant]
     Indication: CARDIAC DISORDER
     Dosage: 1200 MG/360 OMEGA 3
     Route: 065
  10. FISH OIL [Concomitant]
     Indication: MEDICAL DIET
     Dosage: 1000MG/300 OMEGA 3,
     Route: 065
  11. FISH OIL [Concomitant]
     Indication: MEDICAL DIET
     Dosage: 1200 MG/360 OMEGA 3
     Route: 065
  12. VITAMIN B12 [Concomitant]
     Indication: MEDICAL DIET
     Route: 065
  13. HYDROCODONE/ACETAMINOPHEN [Concomitant]
     Indication: ARTHRALGIA
     Dosage: 5-500
     Route: 065
  14. HYDROCODONE/ACETAMINOPHEN [Concomitant]
     Indication: ARTHRALGIA
     Dosage: 7.5-200
     Route: 065
  15. WARFARIN SODIUM [Concomitant]
     Indication: CARDIAC DISORDER
     Dosage: 5 ON ODD DAYS; 6 ON EVEN DAYS.
     Route: 065
  16. METFORMIN [Concomitant]
     Indication: DIABETES MELLITUS
     Dosage: ONE IN MORNING AND ONE IN EVENING
     Route: 065
  17. LEVONOR [Concomitant]
     Indication: DIABETES MELLITUS
     Route: 048
  18. PREDNISONE [Concomitant]
     Indication: PAIN
     Dosage: ON SLIDING SCALE
     Route: 065
  19. PREDNISONE [Concomitant]
     Indication: RHEUMATOID ARTHRITIS
     Dosage: ON SLIDING SCALE
     Route: 065
  20. DILTIAZEM ER [Concomitant]
     Indication: CARDIAC DISORDER
     Route: 065
  21. LOSARTAN [Concomitant]
     Indication: BLOOD PRESSURE
     Route: 065
  22. LOSARTAN [Concomitant]
     Indication: CARDIAC DISORDER
     Route: 065
  23. FUROSEMIDE [Concomitant]
     Indication: CARDIAC DISORDER
     Route: 065
  24. LIVALO [Concomitant]
     Indication: BLOOD CHOLESTEROL
     Route: 065
  25. FENOFIBRATE [Concomitant]
     Indication: BLOOD CHOLESTEROL
     Route: 065
  26. LYRICA [Concomitant]
     Indication: DIABETES MELLITUS
     Route: 065
  27. VITAMIN C [Concomitant]
     Indication: MEDICAL DIET
     Route: 065
  28. VITAMIN D [Concomitant]
     Indication: MEDICAL DIET
     Route: 065
  29. LEVEMIR [Concomitant]
     Indication: DIABETES MELLITUS
     Dosage: BEFORE BREAKFAST
     Route: 065
  30. HUMALOG [Concomitant]
     Indication: DIABETES MELLITUS
     Dosage: SLIDING SCALE BEFORE MEALS THRICE A DAY
     Route: 065
  31. WOMENS ONE A DAY VITAMINS [Concomitant]
     Indication: ROUTINE HEALTH MAINTENANCE
     Dosage: WOMEN^S VITAMIN
     Route: 065
  32. ALPHA LIPOIC ACID [Concomitant]
     Indication: PAIN IN EXTREMITY
     Route: 065
  33. LIPOFENE [Concomitant]
     Indication: BLOOD CHOLESTEROL
     Route: 065
  34. XARELTO [Concomitant]
     Indication: ANTICOAGULANT THERAPY
     Route: 065
  35. VESICARE [Concomitant]
     Indication: BLADDER DISORDER
     Route: 065

REACTIONS (16)
  - Knee arthroplasty [Unknown]
  - Pancreatitis [Unknown]
  - Surgery [Unknown]
  - Thrombophlebitis [Unknown]
  - Blood glucose increased [Recovering/Resolving]
  - Weight increased [Recovering/Resolving]
  - Carpal tunnel syndrome [Unknown]
  - Clostridium difficile infection [Unknown]
  - Pneumonia [Unknown]
  - Onychomycosis [Unknown]
  - Urinary tract infection [Unknown]
  - Tooth extraction [Unknown]
  - Thrombosis [Unknown]
  - Hypertonic bladder [Unknown]
  - Drug ineffective [Not Recovered/Not Resolved]
  - Fatigue [Not Recovered/Not Resolved]
